FAERS Safety Report 8996511 (Version 1)
Quarter: 2013Q1

REPORT INFORMATION
  Report Type: Spontaneous
  Country: US (occurrence: US)
  Receive Date: 20130104
  Receipt Date: 20130104
  Transmission Date: 20140127
  Serious: No
  Sender: FDA-Public Use
  Company Number: US-PFIZER INC-2013000265

PATIENT
  Sex: Female

DRUGS (2)
  1. DETROL LA [Suspect]
     Dosage: 4 MG, UNK
     Dates: start: 2012
  2. OMEGA 3 [Concomitant]
     Dosage: 4 G, UNK

REACTIONS (2)
  - Dry eye [Unknown]
  - Vision blurred [Unknown]
